FAERS Safety Report 6415424-0 (Version None)
Quarter: 2009Q4

REPORT INFORMATION
  Report Type: 
  Country: None (occurrence: None)
  Receive Date: 20091027
  Receipt Date: 20091016
  Transmission Date: 20100525
  Serious: Yes (Hospitalization)
  Sender: FDA-Public Use
  Company Number: US-JNJFOC-20091006271

PATIENT
  Sex: Male
  Weight: 86.96 kg

DRUGS (5)
  1. DOXORUBICIN HCL [Suspect]
     Indication: MULTIPLE MYELOMA
     Route: 042
  2. REVLIMID [Suspect]
     Indication: MULTIPLE MYELOMA
     Route: 065
  3. VELCADE [Suspect]
     Indication: MULTIPLE MYELOMA
     Route: 042
  4. DEXAMETHASONE [Suspect]
     Indication: MULTIPLE MYELOMA
     Route: 048
  5. COUMADIN [Concomitant]
     Dosage: 7.5MG ADMINISTERED AT BEDTIME
     Route: 065

REACTIONS (3)
  - ABDOMINAL PAIN [None]
  - DYSURIA [None]
  - PLEURITIC PAIN [None]
